FAERS Safety Report 6542208-5 (Version None)
Quarter: 2010Q1

REPORT INFORMATION
  Report Type: 
  Country: None (occurrence: None)
  Receive Date: 20100119
  Receipt Date: 20100118
  Transmission Date: 20100710
  Serious: Yes (Hospitalization)
  Sender: FDA-Public Use
  Company Number: A0839976A

PATIENT
  Age: 55 Year
  Sex: Female
  Weight: 80.9 kg

DRUGS (1)
  1. AVANDIA [Suspect]
     Indication: DIABETES MELLITUS
     Dosage: 4MG TWICE PER DAY
     Route: 048
     Dates: start: 20010101, end: 20020101

REACTIONS (4)
  - CARDIOMEGALY [None]
  - HEART RATE INCREASED [None]
  - HEART VALVE INCOMPETENCE [None]
  - IMPAIRED WORK ABILITY [None]
